FAERS Safety Report 21413167 (Version 2)
Quarter: 2022Q4

REPORT INFORMATION
  Report Type: Spontaneous
  Country: FR (occurrence: FR)
  Receive Date: 20221005
  Receipt Date: 20221019
  Transmission Date: 20230113
  Serious: Yes (Hospitalization, Congenital Anomaly, Other)
  Sender: FDA-Public Use
  Company Number: FR-SA-2022SA379835

PATIENT
  Age: 48 Year
  Sex: Male
  Weight: 62 kg

DRUGS (6)
  1. TRAMADOL HYDROCHLORIDE [Suspect]
     Active Substance: TRAMADOL HYDROCHLORIDE
     Indication: Product used for unknown indication
     Dosage: 150 MILLIGRAM, 1/DAY
     Route: 065
  2. ALGIC [Concomitant]
     Dosage: UNK
     Route: 065
  3. TRANSILANE [PLANTAGO OVATA] [Concomitant]
     Dosage: UNK
     Route: 065
  4. LYRICA [Concomitant]
     Active Substance: PREGABALIN
     Dosage: 600 MILLIGRAM
     Route: 065
  5. LYRICA [Concomitant]
     Active Substance: PREGABALIN
     Dosage: 200 MILLIGRAM, EVERY 12 HRS
     Route: 065
  6. POLYETHYLENE GLYCOL 4000 [Concomitant]
     Active Substance: POLYETHYLENE GLYCOL 4000
     Dosage: UNK
     Route: 065

REACTIONS (20)
  - Facial paralysis [Unknown]
  - Drug dependence [Unknown]
  - Sensory disturbance [Unknown]
  - Fatigue [Unknown]
  - Musculoskeletal stiffness [Unknown]
  - Hypoaesthesia [Not Recovered/Not Resolved]
  - Quadriparesis [Unknown]
  - COVID-19 [Unknown]
  - Nightmare [Unknown]
  - Paraplegia [Unknown]
  - Skin wrinkling [Unknown]
  - Quadriplegia [Unknown]
  - Discomfort [Unknown]
  - Anxiety [Unknown]
  - Somnolence [Unknown]
  - Guillain-Barre syndrome [Unknown]
  - Hyperaesthesia [Not Recovered/Not Resolved]
  - Amnesia [Unknown]
  - Pain [Unknown]
  - Drug abuse [Unknown]

NARRATIVE: CASE EVENT DATE: 20200226
